FAERS Safety Report 23866741 (Version 2)
Quarter: 2024Q2

REPORT INFORMATION
  Report Type: Spontaneous
  Country: CN (occurrence: None)
  Receive Date: 20240517
  Receipt Date: 20240612
  Transmission Date: 20240715
  Serious: Yes (Hospitalization, Other)
  Sender: FDA-Public Use
  Company Number: 2024A113549

PATIENT
  Age: 24803 Day
  Sex: Male
  Weight: 57 kg

DRUGS (1)
  1. OSIMERTINIB [Suspect]
     Active Substance: OSIMERTINIB
     Indication: Non-small cell lung cancer
     Route: 048
     Dates: start: 20240131, end: 20240422

REACTIONS (4)
  - Deep vein thrombosis [Recovering/Resolving]
  - Coronary artery disease [Recovering/Resolving]
  - Pulmonary embolism [Recovering/Resolving]
  - Acute coronary syndrome [Recovering/Resolving]

NARRATIVE: CASE EVENT DATE: 20240419
